FAERS Safety Report 20480889 (Version 1)
Quarter: 2022Q1

REPORT INFORMATION
  Report Type: Spontaneous
  Country: US (occurrence: US)
  Receive Date: 20220216
  Receipt Date: 20220216
  Transmission Date: 20220424
  Serious: Yes (Other)
  Sender: FDA-Public Use
  Company Number: US-OTSUKA-2021_000032AA

PATIENT
  Age: 15 Year
  Sex: Male

DRUGS (6)
  1. DECITABINE [Suspect]
     Active Substance: DECITABINE
     Indication: Autologous haematopoietic stem cell transplant
     Dosage: 20 MG/M2 (DAYS 1-5)
     Route: 065
  2. DECITABINE [Suspect]
     Active Substance: DECITABINE
     Indication: Chronic myelomonocytic leukaemia
  3. BUSULFAN [Suspect]
     Active Substance: BUSULFAN
     Indication: Chronic myelomonocytic leukaemia
     Dosage: UNK
     Route: 065
  4. BUSULFAN [Suspect]
     Active Substance: BUSULFAN
     Indication: Bone marrow conditioning regimen
  5. VENETOCLAX [Suspect]
     Active Substance: VENETOCLAX
     Indication: Chronic myelomonocytic leukaemia
     Dosage: 400 MG, QD
     Route: 065
  6. VENETOCLAX [Suspect]
     Active Substance: VENETOCLAX
     Indication: Stem cell transplant

REACTIONS (6)
  - Neutropenia [Unknown]
  - Anaemia [Unknown]
  - Nausea [Unknown]
  - Thrombocytopenia [Unknown]
  - Product use issue [Unknown]
  - Product use in unapproved indication [Unknown]
